FAERS Safety Report 15306907 (Version 1)
Quarter: 2018Q3

REPORT INFORMATION
  Report Type: Report from Study
  Country: TR (occurrence: TR)
  Receive Date: 20180822
  Receipt Date: 20180822
  Transmission Date: 20181010
  Serious: Yes (Other)
  Sender: FDA-Public Use
  Company Number: TR-MYLANLABS-2018M1061938

PATIENT
  Age: 3 Year
  Sex: Male

DRUGS (1)
  1. TRETINOIN. [Suspect]
     Active Substance: TRETINOIN
     Indication: ACUTE PROMYELOCYTIC LEUKAEMIA
     Dosage: 25 TO 45 MG/M2/D FROM THE INDUCTION TO DURING WITH MAINTENANCE TREATMENT
     Route: 065

REACTIONS (1)
  - Idiopathic intracranial hypertension [Unknown]
